FAERS Safety Report 7397422-6 (Version None)
Quarter: 2011Q2

REPORT INFORMATION
  Report Type: 
  Country: None (occurrence: None)
  Receive Date: 20110406
  Receipt Date: 20110328
  Transmission Date: 20111010
  Serious: Yes (Other)
  Sender: FDA-Public Use
  Company Number: US-ASTRAZENECA-2011SE17296

PATIENT
  Sex: Female

DRUGS (1)
  1. FASLODEX [Suspect]
     Route: 030
     Dates: start: 20110201

REACTIONS (3)
  - METASTASES TO LIVER [None]
  - TUMOUR MARKER INCREASED [None]
  - MUSCULOSKELETAL DISORDER [None]
